FAERS Safety Report 17291789 (Version 3)
Quarter: 2020Q1

REPORT INFORMATION
  Report Type: Spontaneous
  Country: US (occurrence: US)
  Receive Date: 20200121
  Receipt Date: 20200214
  Transmission Date: 20200409
  Serious: Yes (Other)
  Sender: FDA-Public Use
  Company Number: US-BAYER-2020-007969

PATIENT
  Age: 25 Year
  Sex: Female

DRUGS (5)
  1. HYDROXYCHLOROQUINE [Concomitant]
     Active Substance: HYDROXYCHLOROQUINE
     Dosage: UNK
     Route: 048
  2. CITALOPRAM HYDROBROMIDE. [Concomitant]
     Active Substance: CITALOPRAM HYDROBROMIDE
     Dosage: UNK
     Route: 048
  3. MIRENA [Suspect]
     Active Substance: LEVONORGESTREL
     Indication: CONTRACEPTION
     Dosage: 20 MCG/24HR, CONT
     Route: 015
     Dates: start: 20191216, end: 20191230
  4. PROBIOTIC 4 [Concomitant]
     Dosage: UNK
     Route: 048
  5. PRENATAL [ASCORBIC ACID;CALCIUM GLUCONATE;CUPRIC CARBONATE, BASIC; [Concomitant]
     Dosage: UNK
     Route: 048

REACTIONS (4)
  - Vaginal discharge [None]
  - Dyspareunia [None]
  - Pelvic pain [None]
  - Device dislocation [Recovered/Resolved]

NARRATIVE: CASE EVENT DATE: 20191230
